FAERS Safety Report 9548713 (Version 1)
Quarter: 2013Q2

REPORT INFORMATION
  Report Type: Spontaneous
  Country: US (occurrence: None)
  Receive Date: 20130627
  Receipt Date: 20130627
  Transmission Date: 20140414
  Serious: Yes (Other)
  Sender: FDA-Public Use
  Company Number: 1000043501

PATIENT
  Age: 69 Year
  Sex: Female

DRUGS (9)
  1. LINZESS [Suspect]
     Indication: CONSTIPATION
     Route: 048
     Dates: start: 201302, end: 20130312
  2. LINZESS [Suspect]
     Indication: CONSTIPATION
     Route: 048
     Dates: start: 20130313, end: 20130313
  3. VERAPAMIL (VERAPAMIL) (VERAPAMIL) [Concomitant]
  4. SYNTHROID (LEVOTHYROXINE SODIUM) (LEVOTHYRO [Concomitant]
  5. SYMBICORT [Suspect]
     Indication: ASTHMA
  6. NEXIUM (ESOMEPRAZOLE) (ESOMEPRAZOLE) [Concomitant]
  7. ANTI-INFLAMMATORY NOS (ANTI-INFLAMMATORY NOS) (ANTI-INFLAMMATORY NOS) [Concomitant]
  8. HYDROCHLOROTHIAZIDE (HYDROCHLOROTHYIAZIDE) (HYDROCHLOROTHIAZIDE) [Concomitant]
  9. ALBUTEROL (ALBUTEROL) (ALBUTEROL) [Concomitant]

REACTIONS (2)
  - Drug ineffective [None]
  - Defaecation urgency [None]
